FAERS Safety Report 6912065-3 (Version None)
Quarter: 2010Q3

REPORT INFORMATION
  Report Type: 
  Country: None (occurrence: None)
  Receive Date: 20100806
  Receipt Date: 20071031
  Transmission Date: 20110219
  Serious: Yes (Other)
  Sender: FDA-Public Use
  Company Number: US-PFIZER INC-2007092132

PATIENT
  Age: 51 Year
  Sex: Male

DRUGS (1)
  1. VFEND [Suspect]
     Indication: HISTOPLASMOSIS
     Route: 048

REACTIONS (1)
  - HALLUCINATION [None]
